FAERS Safety Report 9660268 (Version 1)
Quarter: 2013Q4

REPORT INFORMATION
  Report Type: Spontaneous
  Country: US (occurrence: US)
  Receive Date: 20131031
  Receipt Date: 20131031
  Transmission Date: 20140711
  Serious: No
  Sender: FDA-Public Use
  Company Number: US-PURDUE-USA-2011-0071102

PATIENT
  Sex: Female

DRUGS (4)
  1. OXYCONTIN TABLETS [Suspect]
     Indication: FIBROMYALGIA
     Dosage: 40 MG, BID
  2. OXYCONTIN TABLETS [Suspect]
     Indication: NECK PAIN
     Dosage: 20 MG, QID
  3. OXYCONTIN TABLETS [Suspect]
     Indication: ARTHRALGIA
  4. OXYCONTIN TABLETS [Suspect]
     Indication: CHRONIC FATIGUE SYNDROME

REACTIONS (1)
  - Drug effect decreased [Unknown]
